FAERS Safety Report 6720245-5 (Version None)
Quarter: 2010Q2

REPORT INFORMATION
  Report Type: 
  Country: None (occurrence: None)
  Receive Date: 20100511
  Receipt Date: 20100430
  Transmission Date: 20101027
  Serious: Yes (Hospitalization)
  Sender: FDA-Public Use
  Company Number: PHHY2010US28632

PATIENT
  Age: 33 Year
  Sex: Female
  Weight: 54 kg

DRUGS (3)
  1. NEORAL [Suspect]
     Indication: RENAL TRANSPLANT
     Dosage: 300 MG DAILY
     Route: 048
     Dates: start: 19970106
  2. PREDNISONE [Concomitant]
     Dosage: 100 MG DAILY
     Route: 048
     Dates: start: 19970128
  3. CELLCEPT [Concomitant]
     Dosage: 200 MG DAILY
     Route: 048
     Dates: start: 19970107, end: 20081028

REACTIONS (1)
  - CYST [None]
